FAERS Safety Report 9915728 (Version 1)
Quarter: 2014Q1

REPORT INFORMATION
  Report Type: Spontaneous
  Country: CA (occurrence: None)
  Receive Date: 20140218
  Receipt Date: 20140218
  Transmission Date: 20141002
  Serious: Yes (Hospitalization)
  Sender: FDA-Public Use
  Company Number: 2014P1001124

PATIENT
  Age: 12 Year
  Sex: Male

DRUGS (3)
  1. RIFAMPIN [Suspect]
     Indication: TUBERCULOSIS
  2. ETHAMBUTOL [Suspect]
     Indication: TUBERCULOSIS
  3. PYRAZINAMIDE [Suspect]
     Indication: TUBERCULOSIS

REACTIONS (1)
  - Drug reaction with eosinophilia and systemic symptoms [None]
